FAERS Safety Report 5766339-2 (Version None)
Quarter: 2008Q2

REPORT INFORMATION
  Report Type: 
  Country: None (occurrence: None)
  Receive Date: 20080611
  Receipt Date: 20080603
  Transmission Date: 20081010
  Serious: Yes (Other)
  Sender: FDA-Public Use
  Company Number: TW-AMGEN-US285521

PATIENT
  Sex: Female

DRUGS (19)
  1. ARANESP [Suspect]
     Indication: DIALYSIS
     Route: 058
     Dates: start: 20051209
  2. EPOETIN BETA [Suspect]
     Route: 065
     Dates: start: 20060208, end: 20061010
  3. ALLOPURINOL [Concomitant]
     Route: 065
     Dates: start: 20051124
  4. GEMFIBROZIL [Concomitant]
     Route: 065
     Dates: start: 20080201
  5. BURINEX [Concomitant]
     Route: 065
     Dates: start: 20080307
  6. CLONIDINE [Concomitant]
     Route: 065
     Dates: start: 20080411
  7. AMBROXOL HYDROCHLORIDE [Concomitant]
     Route: 065
     Dates: start: 20050905, end: 20050905
  8. SODIUM FERRIC GLUCONATE COMPLEX [Concomitant]
     Route: 065
  9. BROMHEXINE [Concomitant]
     Route: 065
     Dates: start: 20070309, end: 20080411
  10. CARVEDILOL [Concomitant]
     Route: 065
     Dates: start: 20051124
  11. FOLIC ACID [Concomitant]
     Route: 065
     Dates: start: 20051124
  12. LIPITOR [Concomitant]
     Route: 065
     Dates: start: 20051124
  13. MEVALOTIN [Concomitant]
     Route: 065
     Dates: start: 20061215, end: 20070105
  14. NORVASC [Concomitant]
     Route: 065
     Dates: start: 20051124
  15. CALCIUM ACETATE [Concomitant]
     Route: 065
     Dates: start: 20051124
  16. RENITEC [Concomitant]
     Route: 065
     Dates: start: 20051124
  17. TENORMIN [Concomitant]
     Route: 065
     Dates: start: 20051124, end: 20061206
  18. VITAMIN B COMPLEX CAP [Concomitant]
     Route: 065
     Dates: start: 20051124, end: 20060123
  19. CRESTOR [Concomitant]
     Route: 065
     Dates: start: 20070105

REACTIONS (2)
  - ANAEMIA [None]
  - SERUM FERRITIN INCREASED [None]
